FAERS Safety Report 14468944 (Version 1)
Quarter: 2018Q1

REPORT INFORMATION
  Report Type: Report from Study
  Country: US (occurrence: US)
  Receive Date: 20180131
  Receipt Date: 20180131
  Transmission Date: 20180509
  Serious: Yes (Hospitalization)
  Sender: FDA-Public Use
  Company Number: US-UCBSA-2018003361

PATIENT

DRUGS (5)
  1. PROPOFOL. [Concomitant]
     Active Substance: PROPOFOL
     Indication: STATUS EPILEPTICUS
     Dosage: 88 MCG/KG/MIN; 9.2 DAYS
  2. LEVETIRACETAM. [Suspect]
     Active Substance: LEVETIRACETAM
     Indication: STATUS EPILEPTICUS
     Dosage: UNKNOWN DOSE
  3. KETAMINE [Concomitant]
     Active Substance: KETAMINE
     Indication: LOCAL ANAESTHESIA
  4. LEVETIRACETAM. [Suspect]
     Active Substance: LEVETIRACETAM
     Indication: OFF LABEL USE
  5. KETAMINE [Concomitant]
     Active Substance: KETAMINE
     Indication: STATUS EPILEPTICUS
     Dosage: 103 MCG/KG/MIN; 13.7

REACTIONS (2)
  - Off label use [Unknown]
  - Liver disorder [Unknown]
